FAERS Safety Report 9349818 (Version 1)
Quarter: 2013Q2

REPORT INFORMATION
  Report Type: Spontaneous
  Country: ES (occurrence: None)
  Receive Date: 20130611
  Receipt Date: 20130611
  Transmission Date: 20140414
  Serious: Yes (Life-Threatening, Hospitalization)
  Sender: FDA-Public Use
  Company Number: INDI-ES-2013-0038

PATIENT
  Age: 54 Year
  Sex: Male

DRUGS (5)
  1. INACID RETARD [Suspect]
     Indication: BACK PAIN
     Route: 048
     Dates: start: 20130304, end: 20130309
  2. PLENUR [Suspect]
     Indication: BIPOLAR DISORDER
     Route: 048
     Dates: start: 2007
  3. HALOPERIDOL (HALOPERIDOL) (UNKNOWN) (HALOPERIDOL) [Concomitant]
  4. INALADUO ACCUHALER 50 (SERETIDE) (INHALANT) (FLUTICASONE PROPRIONATE, SALMETEROL XINAFOATE) [Concomitant]
  5. VENTOLIN 100 (SALBUTAMOL) (100 MICROGRAM, INHALANT) (SALBUTAMOL) [Concomitant]

REACTIONS (3)
  - Coma [None]
  - Hypernatraemia [None]
  - Hyperammonaemia [None]
